FAERS Safety Report 25940304 (Version 1)
Quarter: 2025Q4

REPORT INFORMATION
  Report Type: Spontaneous
  Country: EU (occurrence: EU)
  Receive Date: 20251020
  Receipt Date: 20251020
  Transmission Date: 20260117
  Serious: Yes (Hospitalization)
  Sender: ALEXION PHARMACEUTICALS
  Company Number: EU-ASTRAZENECA-202510EEA011496ES

PATIENT
  Sex: Female

DRUGS (2)
  1. TEZEPELUMAB [Suspect]
     Active Substance: TEZEPELUMAB
     Route: 065
  2. TEZEPELUMAB [Suspect]
     Active Substance: TEZEPELUMAB

REACTIONS (3)
  - Asthma [Recovered/Resolved]
  - Alopecia [Recovered/Resolved]
  - Malaise [Recovered/Resolved]
